FAERS Safety Report 5287577-1 (Version None)
Quarter: 2007Q1

REPORT INFORMATION
  Report Type: 
  Country: None (occurrence: None)
  Receive Date: 20070126
  Receipt Date: 20050912
  Transmission Date: 20070707
  Serious: No
  Sender: FDA-Public Use
  Company Number: 2006CT001140

PATIENT
  Age: 73 Year
  Sex: Female
  Weight: 70.3 kg

DRUGS (16)
  1. VENTAVIS [Suspect]
     Indication: PULMONARY HYPERTENSION
     Dosage: 5 UG;4XD;INH
     Route: 055
     Dates: start: 20050628, end: 20050912
  2. SILDENAFIL CITRATE [Concomitant]
  3. ALLOPURINOL [Concomitant]
  4. LOPRESSOR [Concomitant]
  5. PEPCID [Concomitant]
  6. AMBIEN [Concomitant]
  7. CALTRATE [Concomitant]
  8. ATORVASTATIN CALCIUM [Concomitant]
  9. LASIX [Concomitant]
  10. SYNTHROID [Concomitant]
  11. TYLENOL [Concomitant]
  12. ACTIFED [Concomitant]
  13. CYCLOSPORINE [Concomitant]
  14. NEORAL [Concomitant]
  15. AVANDIA [Concomitant]
  16. CELLCEPT [Concomitant]

REACTIONS (2)
  - ASTHENIA [None]
  - PAIN [None]
